FAERS Safety Report 20509344 (Version 3)
Quarter: 2022Q1

REPORT INFORMATION
  Report Type: Spontaneous
  Country: GB (occurrence: GB)
  Receive Date: 20220223
  Receipt Date: 20220321
  Transmission Date: 20220423
  Serious: Yes (Other)
  Sender: FDA-Public Use
  Company Number: GB-CELLTRION INC.-2022GB001545

PATIENT

DRUGS (2)
  1. INFLIXIMAB [Suspect]
     Active Substance: INFLIXIMAB
     Indication: Colitis ulcerative
     Dosage: 120 MG, EOW (PHARMACEUTICAL DOSE FORM: 231)
     Route: 058
  2. INFLIXIMAB [Suspect]
     Active Substance: INFLIXIMAB
     Dosage: 3 INFUSIONS IN THE HOSPITAL (PHARMACEUTICAL DOSE FORM: 194)
     Route: 065

REACTIONS (3)
  - COVID-19 [Unknown]
  - Treatment delayed [Unknown]
  - Off label use [Unknown]
